FAERS Safety Report 5163230-X (Version None)
Quarter: 2006Q4

REPORT INFORMATION
  Report Type: 
  Country: None (occurrence: None)
  Receive Date: 20061204
  Receipt Date: 20060307
  Transmission Date: 20070319
  Serious: Yes (Hospitalization)
  Sender: FDA-Public Use
  Company Number: US-ELI_LILLY_AND_COMPANY-US200605006631

PATIENT
  Age: 56 Year
  Sex: Male

DRUGS (3)
  1. ZYPREXA [Suspect]
     Indication: DEPRESSION
     Dosage: 5 MG, UNK
     Dates: start: 20001101, end: 20030101
  2. RISPERIDONE [Concomitant]
     Dates: start: 20021001, end: 20050701
  3. METOPROLOL SUCCINATE [Concomitant]
     Dates: start: 20031001

REACTIONS (5)
  - ARTERIOSCLEROSIS CORONARY ARTERY [None]
  - CHEST PAIN [None]
  - DIABETES MELLITUS [None]
  - HYPERGLYCAEMIA [None]
  - HYPERTENSION [None]
